FAERS Safety Report 5449435-9 (Version None)
Quarter: 2007Q3

REPORT INFORMATION
  Report Type: 
  Country: None (occurrence: None)
  Receive Date: 20070911
  Receipt Date: 20070830
  Transmission Date: 20080115
  Serious: Yes (Other)
  Sender: FDA-Public Use
  Company Number: US-PFIZER INC-2007073483

PATIENT
  Sex: Female
  Weight: 45.4 kg

DRUGS (8)
  1. CHANTIX [Suspect]
     Indication: SMOKING CESSATION THERAPY
  2. ADRIAMYCIN PFS [Suspect]
     Indication: BREAST CANCER
  3. CYTOXAN [Suspect]
     Indication: BREAST CANCER
  4. TAXOL [Suspect]
     Indication: BREAST CANCER
  5. TRASTUZUMAB [Suspect]
     Indication: BREAST CANCER
  6. FEMARA [Concomitant]
  7. WARFARIN SODIUM [Concomitant]
  8. PREVACID [Concomitant]

REACTIONS (8)
  - BLOOD BILIRUBIN INCREASED [None]
  - FLATULENCE [None]
  - LIVER DISORDER [None]
  - LYMPHOCYTE COUNT DECREASED [None]
  - NAUSEA [None]
  - OESOPHAGEAL PAIN [None]
  - RED BLOOD CELL COUNT INCREASED [None]
  - VOMITING [None]
